FAERS Safety Report 8517904-0 (Version None)
Quarter: 2012Q3

REPORT INFORMATION
  Report Type: 
  Country: None (occurrence: None)
  Receive Date: 20120718
  Receipt Date: 20110711
  Transmission Date: 20120928
  Serious: No
  Sender: FDA-Public Use
  Company Number: US-BRISTOL-MYERS SQUIBB COMPANY-15893704

PATIENT
  Age: 71 Year
  Sex: Female

DRUGS (4)
  1. LEVOTHYROXINE SODIUM [Concomitant]
  2. DIGOXIN [Concomitant]
  3. WARFARIN SODIUM [Suspect]
     Dates: start: 20060101
  4. DILTIAZEM [Concomitant]

REACTIONS (1)
  - SKIN DISCOLOURATION [None]
